FAERS Safety Report 20628522 (Version 2)
Quarter: 2022Q1

REPORT INFORMATION
  Report Type: Spontaneous
  Country: GB (occurrence: GB)
  Receive Date: 20220323
  Receipt Date: 20220331
  Transmission Date: 20220423
  Serious: Yes (Other)
  Sender: FDA-Public Use
  Company Number: GB-MHRA-MED-202203111620200690-AN18T

PATIENT
  Age: 35 Year
  Sex: Female

DRUGS (1)
  1. PALBOCICLIB [Suspect]
     Active Substance: PALBOCICLIB
     Indication: Breast cancer metastatic
     Dosage: 125 MG, 1X/DAY
     Dates: start: 20220211, end: 20220304

REACTIONS (1)
  - Oral mucosa erosion [Recovering/Resolving]

NARRATIVE: CASE EVENT DATE: 20220301
